FAERS Safety Report 5287692-2 (Version None)
Quarter: 2007Q2

REPORT INFORMATION
  Report Type: 
  Country: None (occurrence: None)
  Receive Date: 20070405
  Receipt Date: 20070327
  Transmission Date: 20071010
  Serious: Yes (Other)
  Sender: FDA-Public Use
  Company Number: CH-ABBOTT-07P-151-0363185-00

PATIENT
  Age: 28 Year
  Sex: Female

DRUGS (1)
  1. DEPAKENE [Suspect]
     Indication: EPILEPSY
     Route: 048
     Dates: start: 19890101, end: 20070101

REACTIONS (3)
  - INFERTILITY FEMALE [None]
  - OVARIAN DISORDER [None]
  - POLYCYSTIC OVARIES [None]
